FAERS Safety Report 4413857-5 (Version None)
Quarter: 2004Q3

REPORT INFORMATION
  Report Type: 
  Country: None (occurrence: None)
  Receive Date: 20040728
  Receipt Date: 20040715
  Transmission Date: 20050211
  Serious: Yes (Other)
  Sender: FDA-Public Use
  Company Number: BE-JNJFOC-20040403935

PATIENT
  Age: 67 Year
  Sex: Female
  Weight: 45 kg

DRUGS (6)
  1. DURAGESIC [Suspect]
     Dosage: TRANSDERMAL
     Route: 062
  2. DURAGESIC [Suspect]
     Dosage: RESTARTED WITHOUT NSAID
  3. VIOXX [Suspect]
     Dosage: 25 MG
  4. LIORESAL [Concomitant]
  5. FLUANXOL (FLUPENTIXOL DIHYDROCHLORIDE) [Concomitant]
  6. ACETAMINOPHEN [Concomitant]

REACTIONS (5)
  - CYTOMEGALOVIRUS ANTIBODY POSITIVE [None]
  - DRUG INTERACTION [None]
  - EPSTEIN-BARR VIRUS ANTIBODY [None]
  - HEPATITIS TOXIC [None]
  - JAUNDICE [None]
